FAERS Safety Report 23172806 (Version 1)
Quarter: 2023Q4

REPORT INFORMATION
  Report Type: Spontaneous
  Country: CA (occurrence: CA)
  Receive Date: 20231110
  Receipt Date: 20231110
  Transmission Date: 20240110
  Serious: Yes (Hospitalization)
  Sender: FDA-Public Use
  Company Number: CA-BAUSCH-BL-2023-016503

PATIENT

DRUGS (1)
  1. ARAZLO [Suspect]
     Active Substance: TAZAROTENE
     Indication: Product used for unknown indication
     Route: 061
     Dates: start: 202311

REACTIONS (2)
  - Skin disorder [Unknown]
  - Application site hypersensitivity [Unknown]
